FAERS Safety Report 13556892 (Version 1)
Quarter: 2017Q2

REPORT INFORMATION
  Report Type: Spontaneous
  Country: US (occurrence: US)
  Receive Date: 20170517
  Receipt Date: 20170517
  Transmission Date: 20170830
  Serious: Yes (Other)
  Sender: FDA-Public Use
  Company Number: None

PATIENT
  Age: 64 Year
  Sex: Male
  Weight: 84.44 kg

DRUGS (11)
  1. HERCEPTIN [Suspect]
     Active Substance: TRASTUZUMAB
  2. CYCLEBENAZAPRINE [Concomitant]
  3. TYLENOL [Concomitant]
     Active Substance: ACETAMINOPHEN
  4. OXYCODONE [Concomitant]
     Active Substance: OXYCODONE
  5. VITAMIN D [Concomitant]
     Active Substance: CHOLECALCIFEROL
  6. THIOCID 300 [Concomitant]
  7. PYRIDOXAL 5 PHOSPHATE [Concomitant]
  8. CRUCERA [Concomitant]
  9. ACETYL-CARNITINE [Concomitant]
  10. MERIVA 500 [Concomitant]
  11. DAILY VITAMIN [Concomitant]
     Active Substance: VITAMINS

REACTIONS (6)
  - Contusion [None]
  - Drug ineffective [None]
  - Epistaxis [None]
  - Loss of personal independence in daily activities [None]
  - Muscle spasms [None]
  - Myalgia [None]

NARRATIVE: CASE EVENT DATE: 20170508
